FAERS Safety Report 4696754-X (Version None)
Quarter: 2005Q2

REPORT INFORMATION
  Report Type: 
  Country: None (occurrence: None)
  Receive Date: 20050620
  Receipt Date: 20050606
  Transmission Date: 20051028
  Serious: Yes (Other)
  Sender: FDA-Public Use
  Company Number: 18818

PATIENT
  Age: 10 Year
  Sex: Male
  Weight: 6 kg

DRUGS (1)
  1. ACYCLOVIR [Suspect]
     Dosage: 130MG/Q 8HR/IV
     Route: 042
     Dates: start: 20050603, end: 20050505

REACTIONS (1)
  - HYPERKALAEMIA [None]
